FAERS Safety Report 5337874-6 (Version None)
Quarter: 2007Q2

REPORT INFORMATION
  Report Type: 
  Country: None (occurrence: None)
  Receive Date: 20070530
  Receipt Date: 20070521
  Transmission Date: 20071010
  Serious: Yes (Other)
  Sender: FDA-Public Use
  Company Number: DEWYE620810MAY07

PATIENT
  Sex: Female
  Weight: 75 kg

DRUGS (2)
  1. VENLAFAXINE HCL [Suspect]
     Indication: DEPRESSION
     Route: 048
     Dates: start: 20070426
  2. VENLAFAXINE HCL [Suspect]
     Indication: DYSTHYMIC DISORDER

REACTIONS (6)
  - BLOOD AMYLASE INCREASED [None]
  - BLOOD CHOLESTEROL INCREASED [None]
  - HOT FLUSH [None]
  - HYPERHIDROSIS [None]
  - LIPASE INCREASED [None]
  - PANCREATITIS [None]
